FAERS Safety Report 8090946-8 (Version None)
Quarter: 2012Q1

REPORT INFORMATION
  Report Type: 
  Country: None (occurrence: None)
  Receive Date: 20120128
  Receipt Date: 20110728
  Transmission Date: 20120608
  Serious: No
  Sender: FDA-Public Use
  Company Number: US-ABBOTT-11P-163-0842810-00

PATIENT
  Sex: Female
  Weight: 78.996 kg

DRUGS (21)
  1. ADVAIR DISKUS 100/50 [Concomitant]
     Indication: ASTHMA
  2. PROAIR HFA [Concomitant]
     Indication: ASTHMA
  3. AMITRIPTYLINE HCL [Concomitant]
     Indication: INSOMNIA
  4. VITAMIN B-12 [Concomitant]
     Indication: ANAEMIA
  5. PRAVASTATIN [Concomitant]
     Indication: BLOOD CHOLESTEROL INCREASED
  6. DICYCLOMINE [Concomitant]
     Indication: ABDOMINAL PAIN
  7. GEMFIBROZIL [Concomitant]
     Indication: BLOOD CHOLESTEROL INCREASED
  8. AMITRIPTYLINE HCL [Concomitant]
     Indication: DEPRESSION
     Dosage: AT BEDTIME
  9. HUMIRA [Suspect]
     Indication: PSORIASIS
     Route: 058
     Dates: start: 20101201
  10. OMEPRAZOLE [Concomitant]
     Indication: GASTROOESOPHAGEAL REFLUX DISEASE
  11. METFORMIN HCL [Concomitant]
     Indication: DIABETES MELLITUS
  12. CYCLOSPORINE [Concomitant]
     Indication: PSORIASIS
     Dosage: AT BEDTIME
  13. FOLIC ACID [Concomitant]
     Indication: VITAMIN SUPPLEMENTATION
  14. CLOBETASOL [Concomitant]
     Indication: PSORIASIS
     Route: 061
  15. OXYCODONE HCL [Concomitant]
     Indication: PAIN
  16. TRIAMCINALONE [Concomitant]
     Indication: PSORIASIS
     Route: 061
  17. LISINOPRIL [Concomitant]
     Indication: HYPERTENSION
  18. LORAZEPAM [Concomitant]
     Indication: ANXIETY
  19. HYDROCODONE BITARTRATE [Concomitant]
     Indication: PAIN
     Dosage: 7.5/750- 5DAILY
  20. DOXEPIN [Concomitant]
     Indication: DEPRESSION
     Dosage: AT BEDTIME
  21. VITAMIN TAB [Concomitant]
     Indication: VITAMIN SUPPLEMENTATION

REACTIONS (4)
  - BARRETT'S OESOPHAGUS [None]
  - COLONIC POLYP [None]
  - GASTRIC ULCER [None]
  - GASTROOESOPHAGEAL REFLUX DISEASE [None]
